FAERS Safety Report 25324781 (Version 1)
Quarter: 2025Q2

REPORT INFORMATION
  Report Type: Spontaneous
  Country: US (occurrence: None)
  Receive Date: 20250516
  Receipt Date: 20250516
  Transmission Date: 20250717
  Serious: No
  Sender: FDA-CTU
  Company Number: None

PATIENT
  Age: 74 Year
  Sex: Male
  Weight: 79.2 kg

DRUGS (1)
  1. PRIMIDONE [Suspect]
     Active Substance: PRIMIDONE
     Indication: Essential tremor
     Dosage: OTHER QUANTITY : 1 TABLET(S);?FREQUENCY : DAILY;?
     Route: 048

REACTIONS (2)
  - Drug interaction [None]
  - Drug ineffective [None]

NARRATIVE: CASE EVENT DATE: 20250501
